FAERS Safety Report 14221867 (Version 3)
Quarter: 2017Q4

REPORT INFORMATION
  Report Type: Spontaneous
  Country: US (occurrence: US)
  Receive Date: 20171124
  Receipt Date: 20171222
  Transmission Date: 20180321
  Serious: Yes (Other)
  Sender: FDA-Public Use
  Company Number: US-AMGEN-USASP2017175934

PATIENT
  Age: 89 Year
  Sex: Female

DRUGS (2)
  1. ENBREL [Suspect]
     Active Substance: ETANERCEPT
     Indication: RHEUMATOID ARTHRITIS
     Dosage: 50 MG, QWK
     Route: 058
     Dates: end: 201711
  2. ENBREL [Suspect]
     Active Substance: ETANERCEPT
     Dosage: 50 MG, QWK
     Route: 065
     Dates: start: 2017

REACTIONS (16)
  - Migraine [Unknown]
  - Malaise [Unknown]
  - Gastric disorder [Not Recovered/Not Resolved]
  - Dizziness [Unknown]
  - Fatigue [Unknown]
  - Wrong technique in product usage process [Unknown]
  - Hypophagia [Unknown]
  - Constipation [Unknown]
  - Cataract operation [Unknown]
  - Balance disorder [Unknown]
  - Decreased appetite [Unknown]
  - Ocular icterus [Unknown]
  - Abdominal pain upper [Unknown]
  - Yellow skin [Unknown]
  - Feeling abnormal [Unknown]
  - Sinusitis [Unknown]

NARRATIVE: CASE EVENT DATE: 2017
